FAERS Safety Report 4898222-9 (Version None)
Quarter: 2006Q1

REPORT INFORMATION
  Report Type: 
  Country: None (occurrence: None)
  Receive Date: 20060127
  Receipt Date: 20060110
  Transmission Date: 20060701
  Serious: Yes (Death)
  Sender: FDA-Public Use
  Company Number: US200601002368

PATIENT
  Age: 82 Year
  Sex: Female

DRUGS (1)
  1. ZYPREXA [Suspect]
     Indication: PSYCHOTIC DISORDER
     Dosage: 2.5 ORAL
     Route: 048
     Dates: start: 20051201, end: 20051201

REACTIONS (1)
  - DEATH [None]
